FAERS Safety Report 12299511 (Version 1)
Quarter: 2016Q2

REPORT INFORMATION
  Report Type: Spontaneous
  Country: US (occurrence: US)
  Receive Date: 20160425
  Receipt Date: 20160425
  Transmission Date: 20160815
  Serious: No
  Sender: FDA-Public Use
  Company Number: US-PFIZER INC-2016206688

PATIENT

DRUGS (1)
  1. NICOTROL [Suspect]
     Active Substance: NICOTINE
     Dosage: UNK

REACTIONS (2)
  - Irritability [Unknown]
  - Cough [Unknown]
